FAERS Safety Report 25111001 (Version 1)
Quarter: 2025Q1

REPORT INFORMATION
  Report Type: Spontaneous
  Country: FR (occurrence: FR)
  Receive Date: 20250324
  Receipt Date: 20250324
  Transmission Date: 20250408
  Serious: Yes (Hospitalization, Other)
  Sender: ALEXION PHARMACEUTICALS
  Company Number: None

PATIENT
  Age: 69 Year
  Weight: 53 kg

DRUGS (1)
  1. TICAGRELOR [Suspect]
     Active Substance: TICAGRELOR
     Indication: Thrombosis prophylaxis

REACTIONS (5)
  - Dyspnoea [Recovering/Resolving]
  - Haematoma [Recovering/Resolving]
  - Pruritus [Recovering/Resolving]
  - Cholecystitis [Recovering/Resolving]
  - Chest discomfort [Recovering/Resolving]
